FAERS Safety Report 13242300 (Version 1)
Quarter: 2017Q1

REPORT INFORMATION
  Report Type: Spontaneous
  Country: US (occurrence: US)
  Receive Date: 20170216
  Receipt Date: 20170216
  Transmission Date: 20170428
  Serious: Yes (Death)
  Sender: FDA-Public Use
  Company Number: None

PATIENT
  Age: 71 Year
  Sex: Male
  Weight: 80 kg

DRUGS (5)
  1. CASPOFUNGIN [Suspect]
     Active Substance: CASPOFUNGIN
     Indication: LUNG INFECTION
     Route: 042
     Dates: start: 20170208, end: 20170208
  2. COLISTIN [Concomitant]
     Active Substance: COLISTIN
  3. PYRIDOSTIGMINE [Concomitant]
     Active Substance: PYRIDOSTIGMINE
  4. MEROPENEM. [Suspect]
     Active Substance: MEROPENEM
     Indication: LUNG INFECTION
     Route: 042
     Dates: start: 20170206, end: 20170208
  5. TORSEMIDE. [Concomitant]
     Active Substance: TORSEMIDE

REACTIONS (1)
  - Cardiac arrest [None]

NARRATIVE: CASE EVENT DATE: 20170208
